FAERS Safety Report 18733185 (Version 1)
Quarter: 2021Q1

REPORT INFORMATION
  Report Type: Report from Study
  Country: None (occurrence: US)
  Receive Date: 20210112
  Receipt Date: 20210112
  Transmission Date: 20210419
  Serious: Yes (Hospitalization)
  Sender: FDA-Public Use
  Company Number: US-ABBVIE-20K-163-3661183-00

PATIENT
  Age: 72 Year
  Sex: Male

DRUGS (2)
  1. HUMIRA [Suspect]
     Active Substance: ADALIMUMAB
     Route: 058
     Dates: start: 20210106
  2. HUMIRA [Suspect]
     Active Substance: ADALIMUMAB
     Indication: CROHN^S DISEASE
     Route: 058
     Dates: start: 20200930

REACTIONS (10)
  - Crohn^s disease [Unknown]
  - Abnormal faeces [Unknown]
  - Nausea [Unknown]
  - Insomnia [Unknown]
  - Gastrointestinal scarring [Unknown]
  - Post procedural constipation [Unknown]
  - Intestinal obstruction [Unknown]
  - Malaise [Unknown]
  - Vomiting [Unknown]
  - Procedural pain [Unknown]

NARRATIVE: CASE EVENT DATE: 2020
